FAERS Safety Report 6825340-8 (Version None)
Quarter: 2010Q3

REPORT INFORMATION
  Report Type: 
  Country: None (occurrence: None)
  Receive Date: 20100708
  Receipt Date: 20061228
  Transmission Date: 20110219
  Serious: No
  Sender: FDA-Public Use
  Company Number: US-PFIZER INC-2007001167

PATIENT
  Sex: Female

DRUGS (3)
  1. CHANTIX [Suspect]
     Dates: start: 20061228
  2. KLONOPIN [Concomitant]
     Indication: CONVULSION
  3. TEGRETOL [Concomitant]
     Indication: CONVULSION

REACTIONS (1)
  - TREMOR [None]
